FAERS Safety Report 12368871 (Version 1)
Quarter: 2016Q2

REPORT INFORMATION
  Report Type: Spontaneous
  Country: US (occurrence: US)
  Receive Date: 20160513
  Receipt Date: 20160513
  Transmission Date: 20160815
  Serious: Yes (Other)
  Sender: FDA-Public Use
  Company Number: US-MDT-ADR-2016-00410

PATIENT
  Age: 29 Year
  Sex: Male

DRUGS (1)
  1. LIORESAL [Suspect]
     Active Substance: BACLOFEN
     Dosage: 611.8MCG/DAY
     Route: 037

REACTIONS (4)
  - Tinnitus [Unknown]
  - Therapeutic response delayed [Unknown]
  - Constipation [Unknown]
  - Overdose [Unknown]
